FAERS Safety Report 7761227-4 (Version None)
Quarter: 2011Q3

REPORT INFORMATION
  Report Type: 
  Country: None (occurrence: None)
  Receive Date: 20110920
  Receipt Date: 20110906
  Transmission Date: 20111222
  Serious: Yes (Hospitalization)
  Sender: FDA-Public Use
  Company Number: GB-RANBAXY-2007RR-07060

PATIENT
  Age: 55 Year
  Sex: Male
  Weight: 85 kg

DRUGS (3)
  1. ACETAMINPHEN AND CODEINE PHOSPHATE [Suspect]
     Indication: PAIN IN EXTREMITY
     Dosage: 2 DF, QID
     Route: 048
     Dates: start: 20070331, end: 20070402
  2. SINEMET CR [Concomitant]
     Indication: PARKINSONISM
     Dosage: .5 DF, Q4H
     Route: 048
     Dates: start: 20000101
  3. SINEMET [Concomitant]
     Indication: PARKINSONISM
     Dosage: 1 DF, 9/1DAYS
     Route: 048
     Dates: start: 20000101

REACTIONS (1)
  - PARKINSONISM [None]
